FAERS Safety Report 14673327 (Version 1)
Quarter: 2018Q1

REPORT INFORMATION
  Report Type: Spontaneous
  Country: US (occurrence: US)
  Receive Date: 20180322
  Receipt Date: 20180322
  Transmission Date: 20180509
  Serious: Yes (Other)
  Sender: FDA-Public Use
  Company Number: None

PATIENT
  Age: 43 Year
  Sex: Female
  Weight: 99 kg

DRUGS (10)
  1. BENADRYL [Suspect]
     Active Substance: DIPHENHYDRAMINE HYDROCHLORIDE
     Indication: PROPHYLAXIS
     Dates: start: 20180321, end: 20180321
  2. BACLOFEN. [Concomitant]
     Active Substance: BACLOFEN
  3. NAPROXEN OR IBUPROFEN [Concomitant]
  4. VITAMIN D [Concomitant]
     Active Substance: CHOLECALCIFEROL
  5. TYLENOL [Concomitant]
     Active Substance: ACETAMINOPHEN
  6. MULTIVITAMIN [Concomitant]
     Active Substance: VITAMINS
  7. SOLU-MEDROL [Suspect]
     Active Substance: METHYLPREDNISOLONE SODIUM SUCCINATE
  8. TYSABRI [Concomitant]
     Active Substance: NATALIZUMAB
  9. BENADRYL [Suspect]
     Active Substance: DIPHENHYDRAMINE HYDROCHLORIDE
     Indication: PREMEDICATION
     Dates: start: 20180321, end: 20180321
  10. PROVIGIL [Concomitant]
     Active Substance: MODAFINIL

REACTIONS (5)
  - Chest pain [None]
  - Pain in extremity [None]
  - Wrong technique in product usage process [None]
  - Infusion site pain [None]
  - Product deposit [None]

NARRATIVE: CASE EVENT DATE: 20180321
